FAERS Safety Report 17461404 (Version 1)
Quarter: 2020Q1

REPORT INFORMATION
  Report Type: Spontaneous
  Country: US (occurrence: US)
  Receive Date: 20200213
  Receipt Date: 20200213
  Transmission Date: 20200409
  Serious: Yes (Death)
  Sender: FDA-Public Use
  Company Number: None

PATIENT
  Age: 60 Year
  Sex: Male

DRUGS (13)
  1. FLUCONAZOLE. [Concomitant]
     Active Substance: FLUCONAZOLE
  2. HYDRO/APAP [Concomitant]
     Active Substance: ACETAMINOPHEN\HYDROCODONE
  3. METOCLOPRAM [Concomitant]
     Active Substance: METOCLOPRAMIDE
  4. ONETOUCH DEL MIS PLUS POLYETH GLYC [Concomitant]
  5. ATORVASTATIN [Concomitant]
     Active Substance: ATORVASTATIN
  6. ONDANSETRON [Concomitant]
     Active Substance: ONDANSETRON
  7. CEPHALEXIN. [Concomitant]
     Active Substance: CEPHALEXIN
  8. ASPIRIN. [Concomitant]
     Active Substance: ASPIRIN
  9. ESCITALOPRAM [Concomitant]
     Active Substance: ESCITALOPRAM OXALATE
  10. FENTANYL. [Concomitant]
     Active Substance: FENTANYL
  11. IRBESARTAN. [Concomitant]
     Active Substance: IRBESARTAN
  12. NOVOFINE PLS MIS [Concomitant]
  13. AMITIZA [Suspect]
     Active Substance: LUBIPROSTONE
     Indication: PANCREATIC CARCINOMA
     Route: 048
     Dates: start: 20200122

REACTIONS (1)
  - Death [None]

NARRATIVE: CASE EVENT DATE: 20200122
